FAERS Safety Report 10037980 (Version 1)
Quarter: 2014Q1

REPORT INFORMATION
  Report Type: Spontaneous
  Country: US (occurrence: None)
  Receive Date: 20140325
  Receipt Date: 20140325
  Transmission Date: 20141002
  Serious: Yes (Hospitalization)
  Sender: FDA-Public Use
  Company Number: None

PATIENT
  Age: 74 Year
  Sex: Male
  Weight: 85.5 kg

DRUGS (2)
  1. CAPECITABINE (XELODA) 42000MG [Suspect]
     Dosage: XELODA 1500MG BID DAYS 1-14 EVERY 28 DAYS
  2. TEMOZOLOMIDE 1800MG [Suspect]
     Dosage: TEMOFAR 360MG DAYS 10-14 EVERY 28 DAYS

REACTIONS (5)
  - Thrombocytopenia [None]
  - Dizziness [None]
  - Nausea [None]
  - Haemoglobin decreased [None]
  - Rectal haemorrhage [None]
